FAERS Safety Report 23060822 (Version 1)
Quarter: 2023Q4

REPORT INFORMATION
  Report Type: Spontaneous
  Country: US (occurrence: US)
  Receive Date: 20231012
  Receipt Date: 20231012
  Transmission Date: 20240109
  Serious: Yes (Other)
  Sender: FDA-Public Use
  Company Number: US-BAYER-2023A143064

PATIENT
  Age: 76 Year
  Sex: Female

DRUGS (2)
  1. XARELTO [Suspect]
     Active Substance: RIVAROXABAN
     Indication: Product used for unknown indication
     Dosage: UNK
     Route: 048
     Dates: start: 2017
  2. HEPARIN [Concomitant]
     Active Substance: HEPARIN SODIUM

REACTIONS (8)
  - Cardiac ventricular thrombosis [Unknown]
  - Acute right ventricular failure [Unknown]
  - Pulmonary infarction [Unknown]
  - Cardiac ventricular thrombosis [Unknown]
  - Vena cava thrombosis [Unknown]
  - Medical device site thrombosis [Unknown]
  - Product dose omission issue [Unknown]
  - Drug ineffective [Unknown]
